FAERS Safety Report 4931206-0 (Version None)
Quarter: 2006Q1

REPORT INFORMATION
  Report Type: 
  Country: None (occurrence: None)
  Receive Date: 20060302
  Receipt Date: 20050509
  Transmission Date: 20060701
  Serious: Yes (Hospitalization)
  Sender: FDA-Public Use
  Company Number: US-MERCK-0505USA01076

PATIENT
  Age: 67 Year
  Sex: Female
  Weight: 70 kg

DRUGS (2)
  1. VIOXX [Suspect]
     Indication: ARTHRITIS
     Route: 048
     Dates: start: 20000701, end: 20010901
  2. VIOXX [Suspect]
     Indication: PAIN
     Route: 048
     Dates: start: 20000701, end: 20010901

REACTIONS (2)
  - CEREBROVASCULAR ACCIDENT [None]
  - GASTROINTESTINAL DISORDER [None]
